FAERS Safety Report 7204367-0 (Version None)
Quarter: 2010Q4

REPORT INFORMATION
  Report Type: 
  Country: None (occurrence: None)
  Receive Date: 20101230
  Receipt Date: 20101220
  Transmission Date: 20110411
  Serious: Yes (Other)
  Sender: FDA-Public Use
  Company Number: US-JNJCH-2010029502

PATIENT
  Age: 36 Year
  Sex: Male
  Weight: 83.9 kg

DRUGS (4)
  1. ROGAINE [Suspect]
     Indication: ALOPECIA
     Dosage: TEXT:HALF CAPFUL TWICE DAILY
     Route: 061
     Dates: start: 20100925, end: 20101123
  2. BIOTIN [Concomitant]
     Indication: ALOPECIA
     Dosage: TEXT:5000 MCG 1X DAILY
     Route: 065
  3. ONE-A-DAY [Concomitant]
     Indication: VITAMIN SUPPLEMENTATION
     Dosage: TEXT:1X DAILY
     Route: 065
  4. FISH OIL [Concomitant]
     Indication: VITAMIN SUPPLEMENTATION
     Dosage: TEXT:1200MG 2X DAILY
     Route: 065

REACTIONS (2)
  - BLINDNESS TRANSIENT [None]
  - OPTIC NERVE DISORDER [None]
